FAERS Safety Report 18228654 (Version 1)
Quarter: 2020Q3

REPORT INFORMATION
  Report Type: Spontaneous
  Country: US (occurrence: US)
  Receive Date: 20200903
  Receipt Date: 20200903
  Transmission Date: 20201103
  Serious: No
  Sender: FDA-Public Use
  Company Number: US-BECTON DICKINSON-2019BDN00286

PATIENT
  Sex: Female
  Weight: 42.18 kg

DRUGS (4)
  1. DILTIAZEM. [Concomitant]
     Active Substance: DILTIAZEM
  2. OPSUMIT [Concomitant]
     Active Substance: MACITENTAN
  3. CHLORAPREP [Suspect]
     Active Substance: CHLORHEXIDINE GLUCONATE\ISOPROPYL ALCOHOL
     Indication: INFECTION PROPHYLAXIS
     Route: 061
  4. REMODULIN [Concomitant]
     Active Substance: TREPROSTINIL
     Dosage: 43 NG/KG/MIN, CONTINUOUS
     Route: 042
     Dates: start: 20190114

REACTIONS (1)
  - Skin irritation [Unknown]
